FAERS Safety Report 6750283-8 (Version None)
Quarter: 2010Q2

REPORT INFORMATION
  Report Type: 
  Country: None (occurrence: None)
  Receive Date: 20100601
  Receipt Date: 20100528
  Transmission Date: 20101027
  Serious: No
  Sender: FDA-Public Use
  Company Number: US-CEPHALON-2010002989

PATIENT
  Sex: Male

DRUGS (2)
  1. FENTORA [Suspect]
     Indication: NEURALGIA
     Route: 002
  2. SUBOXONE [Concomitant]

REACTIONS (1)
  - DRUG PRESCRIBING ERROR [None]
